FAERS Safety Report 17620377 (Version 3)
Quarter: 2021Q2

REPORT INFORMATION
  Report Type: Report from Study
  Country: None (occurrence: US)
  Receive Date: 20200403
  Receipt Date: 20210614
  Transmission Date: 20210716
  Serious: Yes (Other)
  Sender: FDA-Public Use
  Company Number: US-ABBVIE-20K-163-3343800-00

PATIENT
  Sex: Male

DRUGS (1)
  1. HUMIRA [Suspect]
     Active Substance: ADALIMUMAB
     Indication: COLITIS ULCERATIVE
     Dosage: CITRATE FREE
     Route: 058

REACTIONS (4)
  - Aortic aneurysm [Unknown]
  - Arthralgia [Not Recovered/Not Resolved]
  - Aortic valve incompetence [Unknown]
  - Benign neoplasm of thyroid gland [Unknown]

NARRATIVE: CASE EVENT DATE: 2021
